FAERS Safety Report 9155440 (Version 1)
Quarter: 2013Q1

REPORT INFORMATION
  Report Type: Report from Study
  Country: US (occurrence: US)
  Receive Date: 20130311
  Receipt Date: 20130311
  Transmission Date: 20140127
  Serious: Yes (Hospitalization, Other)
  Sender: FDA-Public Use
  Company Number: US-ROCHE-1180181

PATIENT
  Age: 50 Year
  Sex: Male
  Weight: 86.26 kg

DRUGS (3)
  1. ZELBORAF [Suspect]
     Indication: METASTATIC MALIGNANT MELANOMA
     Route: 048
     Dates: start: 20130105, end: 20130119
  2. ZELBORAF [Suspect]
     Route: 048
     Dates: start: 20130127, end: 20130202
  3. ALLOPURINOL [Concomitant]
     Route: 048

REACTIONS (14)
  - Stevens-Johnson syndrome [Recovering/Resolving]
  - Dysphagia [Unknown]
  - Eye swelling [Recovering/Resolving]
  - Eye infection [Recovering/Resolving]
  - Dysgeusia [Not Recovered/Not Resolved]
  - Photophobia [Not Recovered/Not Resolved]
  - Erythema [Not Recovered/Not Resolved]
  - Upper extremity mass [Recovering/Resolving]
  - Rash [Unknown]
  - Weight decreased [Unknown]
  - Visual impairment [Not Recovered/Not Resolved]
  - Arthralgia [Not Recovered/Not Resolved]
  - Skin exfoliation [Not Recovered/Not Resolved]
  - Fatigue [Unknown]
